FAERS Safety Report 9844299 (Version 1)
Quarter: 2014Q1

REPORT INFORMATION
  Report Type: Spontaneous
  Country: US (occurrence: None)
  Receive Date: 20140122
  Receipt Date: 20140122
  Transmission Date: 20141002
  Serious: Yes (Death)
  Sender: FDA-Public Use
  Company Number: 2014P1000409

PATIENT
  Age: 60 Year
  Sex: Female

DRUGS (7)
  1. DIGOXIN [Suspect]
     Route: 048
  2. METFORMIN [Suspect]
     Route: 048
  3. ATENOLOL [Suspect]
     Route: 048
  4. HYDROCHLOROTHIAZIDE/LISINOPRIL [Concomitant]
     Route: 048
  5. ONDANSETRON [Suspect]
     Route: 048
  6. PRAVASTATIN [Suspect]
     Route: 048
  7. ZOLPIDEM [Suspect]
     Route: 048

REACTIONS (2)
  - Completed suicide [None]
  - Exposure via ingestion [None]
